FAERS Safety Report 8489231-1 (Version None)
Quarter: 2012Q3

REPORT INFORMATION
  Report Type: 
  Country: None (occurrence: None)
  Receive Date: 20120705
  Receipt Date: 20120627
  Transmission Date: 20120928
  Serious: Yes (Hospitalization)
  Sender: FDA-Public Use
  Company Number: IT-UCBSA-033995

PATIENT
  Age: 11 Year
  Sex: Female

DRUGS (3)
  1. TEGRETOL [Suspect]
     Indication: EPILEPSY
     Dosage: 100 MG 28 CHEWABLE TABLETS, DAILY DOSE: 100 MG
     Route: 048
     Dates: start: 20110401, end: 20110501
  2. KEPPRA [Suspect]
     Indication: EPILEPSY
     Dosage: 500 MG 30 TABLETS, DAILY DOSE: 1.2 GM
     Route: 048
     Dates: start: 20110401, end: 20110501
  3. VALPROATE SODIUM [Suspect]
     Indication: ENCEPHALOPATHY
     Dosage: 500 MG 40 TABLETS, DAILY DOSE: 1 GM
     Route: 048
     Dates: start: 20110401, end: 20110501

REACTIONS (1)
  - DYSTONIA [None]
